FAERS Safety Report 8505159 (Version 4)
Quarter: 2012Q4

REPORT INFORMATION
  Report Type: 
  Country: US (occurrence: US)
  Receive Date: 20120412
  Receipt Date: 20120920
  Transmission Date: 20130627
  Serious: No
  Sender: FDA-Public Use
  Company Number: US-PFIZER INC-2012089404

PATIENT
  Age: 51 Year
  Sex: Male

DRUGS (2)
  1. CADUET [Suspect]
     Indication: HYPERTENSION
     Dosage: 10/20
     Route: 048
  2. VIAGRA [Suspect]
     Dosage: UNK

REACTIONS (3)
  - Hypertension [Recovering/Resolving]
  - Malaise [Unknown]
  - Headache [Unknown]
